FAERS Safety Report 10745768 (Version 1)
Quarter: 2015Q1

REPORT INFORMATION
  Report Type: Spontaneous
  Country: US (occurrence: None)
  Receive Date: 20150127
  Receipt Date: 20150127
  Transmission Date: 20150721
  Serious: No
  Sender: FDA-Public Use
  Company Number: None

PATIENT
  Sex: Female

DRUGS (1)
  1. LAMOTRIGINE. [Suspect]
     Active Substance: LAMOTRIGINE

REACTIONS (11)
  - Lip swelling [None]
  - Vomiting [None]
  - Paraesthesia [None]
  - Dry skin [None]
  - Dizziness [None]
  - Product substitution issue [None]
  - Alopecia [None]
  - Hypoaesthesia [None]
  - Therapeutic response changed [None]
  - Nausea [None]
  - Skin burning sensation [None]
